FAERS Safety Report 24096893 (Version 1)
Quarter: 2024Q3

REPORT INFORMATION
  Report Type: Spontaneous
  Country: US (occurrence: US)
  Receive Date: 20240716
  Receipt Date: 20240716
  Transmission Date: 20241016
  Serious: No
  Sender: GRIFOLS
  Company Number: US-IGSA-BIG0025637

PATIENT
  Age: 9 Year
  Sex: Male

DRUGS (2)
  1. GAMUNEX-C [Suspect]
     Active Substance: HUMAN IMMUNOGLOBULIN G
     Indication: Product used for unknown indication
     Dosage: 2.5 GRAM, Q.WK.
     Route: 058
     Dates: start: 202308
  2. GAMUNEX-C [Suspect]
     Active Substance: HUMAN IMMUNOGLOBULIN G
     Dosage: 2.5 GRAM, TOTAL
     Route: 058
     Dates: start: 202302, end: 202308

REACTIONS (7)
  - Vomiting [Unknown]
  - Intentional dose omission [Unknown]
  - Headache [Unknown]
  - Abdominal pain upper [Unknown]
  - Malaise [Unknown]
  - Chills [Unknown]
  - Wrong technique in product usage process [Unknown]

NARRATIVE: CASE EVENT DATE: 20230801
